FAERS Safety Report 18305572 (Version 2)
Quarter: 2020Q4

REPORT INFORMATION
  Report Type: Spontaneous
  Country: US (occurrence: US)
  Receive Date: 20200923
  Receipt Date: 20201229
  Transmission Date: 20210113
  Serious: No
  Sender: FDA-Public Use
  Company Number: US-TEVA-2020-US-1831355

PATIENT
  Age: 59 Year
  Sex: Female

DRUGS (1)
  1. ALBUTEROL SULFATE HFA [Suspect]
     Active Substance: ALBUTEROL SULFATE
     Route: 055

REACTIONS (3)
  - Nausea [Recovered/Resolved]
  - Product substitution issue [Unknown]
  - Product odour abnormal [Unknown]
